FAERS Safety Report 14187569 (Version 1)
Quarter: 2017Q4

REPORT INFORMATION
  Report Type: Spontaneous
  Country: AU (occurrence: AU)
  Receive Date: 20171114
  Receipt Date: 20171114
  Transmission Date: 20180321
  Serious: Yes (Death)
  Sender: FDA-Public Use
  Company Number: AU-JNJFOC-20171109086

PATIENT
  Sex: Male
  Weight: 70 kg

DRUGS (2)
  1. CLOZAPINE. [Suspect]
     Active Substance: CLOZAPINE
     Indication: SCHIZOPHRENIA
     Dosage: AT NIGHT
     Route: 048
  2. PALIPERIDONE. [Suspect]
     Active Substance: PALIPERIDONE
     Indication: SCHIZOPHRENIA
     Dosage: AT NIGHT
     Route: 048

REACTIONS (3)
  - Completed suicide [Fatal]
  - Off label use [Unknown]
  - Inappropriate schedule of drug administration [Unknown]
